FAERS Safety Report 18991167 (Version 1)
Quarter: 2021Q1

REPORT INFORMATION
  Report Type: Spontaneous
  Country: AU (occurrence: AU)
  Receive Date: 20210310
  Receipt Date: 20210310
  Transmission Date: 20210420
  Serious: Yes (Hospitalization, Other)
  Sender: FDA-Public Use
  Company Number: AU-LUPIN PHARMACEUTICALS INC.-2021-02982

PATIENT
  Age: 26 Year
  Sex: Female

DRUGS (27)
  1. BACLOFEN. [Suspect]
     Active Substance: BACLOFEN
     Dosage: 25 MILLIGRAM, BID,  THE PATIENT CONTINUED 50MG BACLOFEN TWICE DAILY AFTERWARDS
     Route: 065
  2. CLONAZEPAM. [Concomitant]
     Active Substance: CLONAZEPAM
     Dosage: 2 MILLIGRAM, FIVE TIMES DAILY
     Route: 065
  3. THYROXINE [Concomitant]
     Active Substance: LEVOTHYROXINE
     Indication: AUTOIMMUNE THYROIDITIS
     Dosage: UNK
     Route: 065
  4. TRAMADOL. [Suspect]
     Active Substance: TRAMADOL
     Indication: STIFF PERSON SYNDROME
     Dosage: 100 MILLIGRAM, IMMEDIATE RELEASE FORMULATION
     Route: 048
  5. CLONIDINE. [Suspect]
     Active Substance: CLONIDINE
     Indication: STIFF PERSON SYNDROME
     Dosage: 25 MICROGRAM, TID
     Route: 065
  6. SODIUM VALPROATE [Suspect]
     Active Substance: VALPROATE SODIUM
     Indication: STIFF PERSON SYNDROME
     Dosage: 250 MILLIGRAM, BID
     Route: 065
  7. KETAMINE [Concomitant]
     Active Substance: KETAMINE
     Dosage: 50 MILLIGRAM
     Route: 060
  8. CLONAZEPAM. [Concomitant]
     Active Substance: CLONAZEPAM
     Dosage: 1 MILLIGRAM, QD
     Route: 065
  9. OXYCODONE [Concomitant]
     Active Substance: OXYCODONE
     Indication: STIFF PERSON SYNDROME
     Dosage: 5 MILLIGRAM, IMMEDIATE RELEASE FORM
     Route: 048
  10. GABAPENTIN. [Suspect]
     Active Substance: GABAPENTIN
     Indication: STIFF PERSON SYNDROME
     Dosage: 400 MILLIGRAM, QID
     Route: 065
  11. AZATHIOPRINE. [Concomitant]
     Active Substance: AZATHIOPRINE
     Indication: PRODUCT USED FOR UNKNOWN INDICATION
     Dosage: UNK
     Route: 065
  12. KETAMINE [Concomitant]
     Active Substance: KETAMINE
     Indication: STIFF PERSON SYNDROME
     Dosage: 50 MILLIGRAM
     Route: 065
  13. MAGNESIUM SULFATE. [Concomitant]
     Active Substance: MAGNESIUM SULFATE
     Dosage: 2 GRAM, MAINTENANCE DOSE
     Route: 065
  14. MAGNESIUM SULFATE. [Concomitant]
     Active Substance: MAGNESIUM SULFATE
     Dosage: 1 GRAM
     Route: 065
  15. PARACETAMOL [Concomitant]
     Active Substance: ACETAMINOPHEN
     Indication: STIFF PERSON SYNDROME
     Dosage: 1 GRAM, TID
     Route: 065
  16. TAPENTADOL [Suspect]
     Active Substance: TAPENTADOL
     Dosage: 100 MILLIGRAM, IMMEDIATE RELEASE FORM
     Route: 065
  17. FLUDROCORTISONE [Concomitant]
     Active Substance: FLUDROCORTISONE
     Indication: PRODUCT USED FOR UNKNOWN INDICATION
     Dosage: UNK
     Route: 065
  18. MIDAZOLAM. [Concomitant]
     Active Substance: MIDAZOLAM
     Indication: STIFF PERSON SYNDROME
     Dosage: 10 MILLIGRAM
     Route: 002
  19. CLONAZEPAM. [Concomitant]
     Active Substance: CLONAZEPAM
     Indication: STIFF PERSON SYNDROME
     Dosage: 2 MILLIGRAM
     Route: 065
  20. CLONIDINE. [Suspect]
     Active Substance: CLONIDINE
     Dosage: 50 MICROGRAM, TID
     Route: 065
  21. TAPENTADOL [Suspect]
     Active Substance: TAPENTADOL
     Indication: STIFF PERSON SYNDROME
     Dosage: 100 MILLIGRAM, SUSTAINED RELEASE FORM
     Route: 065
  22. BACLOFEN. [Suspect]
     Active Substance: BACLOFEN
     Indication: STIFF PERSON SYNDROME
     Dosage: 50 MILLIGRAM, BID
     Route: 065
  23. KETAMINE [Concomitant]
     Active Substance: KETAMINE
     Dosage: 5 MILLIGRAM
     Route: 042
  24. CLONAZEPAM. [Concomitant]
     Active Substance: CLONAZEPAM
     Dosage: 1.5 MILLIGRAM, TID
     Route: 065
  25. MAGNESIUM SULFATE. [Concomitant]
     Active Substance: MAGNESIUM SULFATE
     Indication: STIFF PERSON SYNDROME
     Dosage: 4 GRAM, LOADING DOSE
     Route: 065
  26. HYDROCORTISONE. [Concomitant]
     Active Substance: HYDROCORTISONE
     Indication: PRODUCT USED FOR UNKNOWN INDICATION
     Dosage: UNK
     Route: 065
  27. KETAMINE [Concomitant]
     Active Substance: KETAMINE
     Dosage: 10 MILLIGRAM, THE PATIENT RECEIVED ADDITIONAL IV BOLUS OF KETAMINE AT 5MG DOSE
     Route: 042

REACTIONS (3)
  - Stiff person syndrome [Recovering/Resolving]
  - Drug ineffective [Unknown]
  - Condition aggravated [Recovering/Resolving]
